FAERS Safety Report 12213073 (Version 1)
Quarter: 2016Q1

REPORT INFORMATION
  Report Type: Spontaneous
  Country: US (occurrence: None)
  Receive Date: 20160325
  Receipt Date: 20160325
  Transmission Date: 20160526
  Serious: Yes (Disabling)
  Sender: FDA-Public Use
  Company Number: None

PATIENT
  Sex: Female
  Weight: 69.4 kg

DRUGS (6)
  1. NEURONTIN [Suspect]
     Active Substance: GABAPENTIN
     Indication: PERSONALITY DISORDER
     Dosage: 150/650 2 PILLS NEURONTIN DAILY TWICE DAILY BY MOUTH?B-5
     Route: 048
  2. NEURONTIN [Suspect]
     Active Substance: GABAPENTIN
     Indication: EPILEPSY
     Dosage: 150/650 2 PILLS NEURONTIN DAILY TWICE DAILY BY MOUTH?B-5
     Route: 048
  3. NEURONTIN [Suspect]
     Active Substance: GABAPENTIN
     Indication: HALLUCINATION
     Dosage: 150/650 2 PILLS NEURONTIN DAILY TWICE DAILY BY MOUTH?B-5
     Route: 048
  4. CLONAPEN [Concomitant]
  5. NEURONTIN [Suspect]
     Active Substance: GABAPENTIN
     Indication: ABNORMAL BEHAVIOUR
     Dosage: 150/650 2 PILLS NEURONTIN DAILY TWICE DAILY BY MOUTH?B-5
     Route: 048
  6. FIORCET [Concomitant]

REACTIONS (5)
  - Drug ineffective [None]
  - Epilepsy [None]
  - Aggression [None]
  - Head injury [None]
  - Victim of crime [None]
